FAERS Safety Report 26169239 (Version 1)
Quarter: 2025Q4

REPORT INFORMATION
  Report Type: Spontaneous
  Country: JP (occurrence: JP)
  Receive Date: 20251217
  Receipt Date: 20251217
  Transmission Date: 20260118
  Serious: Yes (Death)
  Sender: MERCK KGAA
  Company Number: JP-Merck Healthcare KGaA-2025028158

PATIENT
  Age: 83 Year
  Sex: Male
  Weight: 64 kg

DRUGS (8)
  1. BAVENCIO [Suspect]
     Active Substance: AVELUMAB
     Indication: Ureteric cancer
     Dates: start: 20230905, end: 20241203
  2. SILODOSIN [Concomitant]
     Active Substance: SILODOSIN
     Indication: Benign prostatic hyperplasia
     Dosage: AFTER BREAKFAST AND DINNER
     Dates: end: 20241224
  3. EPERISONE HYDROCHLORIDE [Concomitant]
     Active Substance: EPERISONE HYDROCHLORIDE
     Indication: Back pain
     Dosage: AFTER EVERY MEAL
     Dates: end: 20241224
  4. POLAPREZINC [Concomitant]
     Active Substance: POLAPREZINC
     Indication: Gastric ulcer
     Dosage: AFTER BREAKFAST
     Dates: end: 20241217
  5. NIZATIDINE [Concomitant]
     Active Substance: NIZATIDINE
     Indication: Gastric ulcer
     Dosage: BEFORE GOING TO BED
     Dates: end: 20241217
  6. ZOLPIDEM TARTRATE [Concomitant]
     Active Substance: ZOLPIDEM TARTRATE
     Indication: Insomnia
     Dosage: 0.25 TO 0.5 TABLETS PER DOSE, ONCE DAILY, BEFORE GOING TO BED
     Dates: end: 20241217
  7. ALPRAZOLAM [Concomitant]
     Active Substance: ALPRAZOLAM
     Indication: Anxiety
     Dosage: AFTER BREAKFAST AND DINNER
     Dates: end: 20241217
  8. ZEPOLAS [Concomitant]
     Indication: Back pain
     Dosage: HEAD, WAIST
     Dates: end: 20241217

REACTIONS (5)
  - Myocardial infarction [Fatal]
  - Ventricular fibrillation [Fatal]
  - Cardiac failure congestive [Fatal]
  - Cardiac arrest [Fatal]
  - Long QT syndrome [Fatal]

NARRATIVE: CASE EVENT DATE: 20241217
